FAERS Safety Report 9006760 (Version 2)
Quarter: 2013Q1

REPORT INFORMATION
  Report Type: Spontaneous
  Country: PT (occurrence: PT)
  Receive Date: 20130110
  Receipt Date: 20130204
  Transmission Date: 20140127
  Serious: Yes (Hospitalization, Disabling, Other)
  Sender: FDA-Public Use
  Company Number: PT-JNJFOC-20130102234

PATIENT
  Sex: 0

DRUGS (1)
  1. REMICADE [Suspect]
     Indication: INFLAMMATORY BOWEL DISEASE
     Route: 042

REACTIONS (1)
  - Adverse event [Unknown]
